FAERS Safety Report 8451174-7 (Version None)
Quarter: 2012Q2

REPORT INFORMATION
  Report Type: 
  Country: None (occurrence: None)
  Receive Date: 20120620
  Receipt Date: 20120227
  Transmission Date: 20120825
  Serious: No
  Sender: FDA-Public Use
  Company Number: US-VERTEX PHARMACEUTICALS INC.-AE-2011-003195

PATIENT
  Sex: Female
  Weight: 54.934 kg

DRUGS (5)
  1. CLOBETASOL PROPRIONATE 0.05% [Concomitant]
  2. RIBAVIRIN [Concomitant]
     Indication: HEPATITIS C
     Route: 048
     Dates: start: 20110922
  3. INCIVEK [Suspect]
     Indication: HEPATITIS C
     Route: 048
     Dates: start: 20110922
  4. PEGASYS [Concomitant]
     Indication: HEPATITIS C
     Route: 058
     Dates: start: 20110921
  5. Q-DRYL [Concomitant]
     Route: 048

REACTIONS (4)
  - STOMATITIS [None]
  - PRURITUS [None]
  - RASH [None]
  - DRUG DOSE OMISSION [None]
